FAERS Safety Report 26034361 (Version 1)
Quarter: 2025Q4

REPORT INFORMATION
  Report Type: Spontaneous
  Country: US (occurrence: US)
  Receive Date: 20251112
  Receipt Date: 20251112
  Transmission Date: 20260117
  Serious: Yes (Other)
  Sender: AUROBINDO
  Company Number: US-MLMSERVICE-20251023-PI687040-00271-1

PATIENT
  Age: 75 Year
  Sex: Male

DRUGS (8)
  1. PREDNISONE [Suspect]
     Active Substance: PREDNISONE
     Indication: Acute febrile neutrophilic dermatosis
     Dosage: 20 MILLIGRAM
     Route: 065
     Dates: start: 2016
  2. PREDNISONE [Suspect]
     Active Substance: PREDNISONE
     Dosage: ATTEMPTS TO TAPER THE DOSE TO 10 MG
     Route: 065
  3. PREDNISONE [Suspect]
     Active Substance: PREDNISONE
     Dosage: RETURN TO 20 MG DAILY
     Route: 065
  4. MYCOPHENOLATE MOFETIL [Concomitant]
     Active Substance: MYCOPHENOLATE MOFETIL
     Indication: Acute febrile neutrophilic dermatosis
     Dosage: 250 MILLIGRAM, DAILY
     Route: 065
     Dates: start: 202305
  5. RINVOQ [Concomitant]
     Active Substance: UPADACITINIB
     Dosage: 15 MILLIGRAM, DAILY
     Route: 065
  6. RINVOQ [Concomitant]
     Active Substance: UPADACITINIB
     Dosage: 30 MILLIGRAM, DAILY
     Route: 065
  7. RINVOQ [Concomitant]
     Active Substance: UPADACITINIB
     Dosage: 45 MILLIGRAM, DAILY
     Route: 065
  8. RINVOQ [Concomitant]
     Active Substance: UPADACITINIB
     Dosage: 30 MILLIGRAM, DAILY
     Route: 065

REACTIONS (4)
  - Intervertebral disc compression [Unknown]
  - Fractured sacrum [Unknown]
  - Spinal osteoarthritis [Unknown]
  - Milia [Unknown]
